FAERS Safety Report 8818802 (Version 1)
Quarter: 2012Q4

REPORT INFORMATION
  Report Type: 
  Country: US (occurrence: US)
  Receive Date: 20121001
  Receipt Date: 20121001
  Transmission Date: 20130627
  Serious: Yes (Life-Threatening, Other)
  Sender: FDA-Public Use
  Company Number: US-ASTRAZENECA-2012SE74664

PATIENT
  Age: 40 Year
  Sex: Female

DRUGS (1)
  1. SEROQUEL [Suspect]
     Indication: SLEEP DISORDER
     Dosage: GENERIC
     Route: 048

REACTIONS (11)
  - Apparent death [Unknown]
  - Cerebrovascular accident [Unknown]
  - Thrombosis [Unknown]
  - Oxygen consumption decreased [Unknown]
  - Feeling abnormal [Unknown]
  - Drug intolerance [Unknown]
  - Speech disorder [Unknown]
  - Rapid eye movements sleep abnormal [Unknown]
  - Fatigue [Unknown]
  - Off label use [Unknown]
  - Drug ineffective [Unknown]
